FAERS Safety Report 4636143-7 (Version None)
Quarter: 2005Q2

REPORT INFORMATION
  Report Type: 
  Country: None (occurrence: None)
  Receive Date: 20050414
  Receipt Date: 20050414
  Transmission Date: 20051028
  Serious: Yes (Other)
  Sender: FDA-Public Use
  Company Number: None

PATIENT
  Sex: Male
  Weight: 78 kg

DRUGS (2)
  1. HEPARIN [Suspect]
     Indication: RENAL FAILURE
     Dosage: WITH DIALYSIS [ONCE]
  2. WARFARIN SODIUM [Concomitant]

REACTIONS (3)
  - CATHETER SITE HAEMORRHAGE [None]
  - TRACHEAL HAEMORRHAGE [None]
  - WOUND HAEMORRHAGE [None]
